FAERS Safety Report 16992569 (Version 1)
Quarter: 2019Q4

REPORT INFORMATION
  Report Type: Spontaneous
  Country: US (occurrence: US)
  Receive Date: 20191104
  Receipt Date: 20191104
  Transmission Date: 20200122
  Serious: Yes (Disabling)
  Sender: FDA-Public Use
  Company Number: None

PATIENT
  Age: 72 Year
  Sex: Female
  Weight: 60.75 kg

DRUGS (5)
  1. AROMASIN (25MG) [Concomitant]
  2. BOOST SUPPLEMENT DRINK [Concomitant]
  3. XGEVA [Suspect]
     Active Substance: DENOSUMAB
     Indication: METASTASES TO BONE
     Dosage: ?          QUANTITY:1 INJECTION(S);OTHER FREQUENCY:MONTHLY;?
     Route: 030
     Dates: start: 20181112, end: 20190506
  4. IBRANCE (100 MG) [Concomitant]
  5. FOLIC ACID. [Concomitant]
     Active Substance: FOLIC ACID

REACTIONS (2)
  - Osteonecrosis of jaw [None]
  - Tooth extraction [None]

NARRATIVE: CASE EVENT DATE: 20190501
